FAERS Safety Report 4710539-7 (Version None)
Quarter: 2005Q3

REPORT INFORMATION
  Report Type: 
  Country: None (occurrence: None)
  Receive Date: 20050707
  Receipt Date: 20050621
  Transmission Date: 20060218
  Serious: Yes (Other)
  Sender: FDA-Public Use
  Company Number: US_0506119529

PATIENT
  Age: 64 Year
  Sex: Female

DRUGS (2)
  1. EVISTA [Suspect]
     Indication: OSTEOPOROSIS
     Dosage: 60 MG/1 DAY
     Dates: start: 20030901
  2. FORTEO [Suspect]
     Indication: OSTEOPOROSIS
     Dosage: 20 UG/1 DAY
     Dates: start: 20041101

REACTIONS (6)
  - BONE PAIN [None]
  - DRUG ADMINISTRATION ERROR [None]
  - ENDOMETRIAL HYPERTROPHY [None]
  - METASTASES TO SPINE [None]
  - SPINAL CORD NEOPLASM [None]
  - UTERINE POLYP [None]
